FAERS Safety Report 25097709 (Version 2)
Quarter: 2025Q1

REPORT INFORMATION
  Report Type: Spontaneous
  Country: JP (occurrence: JP)
  Receive Date: 20250320
  Receipt Date: 20250327
  Transmission Date: 20250408
  Serious: Yes (Hospitalization)
  Sender: PFIZER
  Company Number: JP-ONO-2025JP004774

PATIENT
  Age: 67 Year
  Sex: Male

DRUGS (3)
  1. BRAFTOVI [Suspect]
     Active Substance: ENCORAFENIB
     Indication: Thyroid cancer
     Dosage: 450 MG, EVERYDAY
     Route: 048
     Dates: start: 20250304, end: 20250307
  2. MEKTOVI [Suspect]
     Active Substance: BINIMETINIB
     Indication: Thyroid cancer
     Dosage: 45 MG, Q12H
     Route: 048
     Dates: start: 20250304, end: 20250306
  3. MEKTOVI [Suspect]
     Active Substance: BINIMETINIB
     Dosage: 45 MG, EVERYDAY
     Route: 048
     Dates: start: 20250307, end: 20250307

REACTIONS (3)
  - Nausea [Recovering/Resolving]
  - Hypophagia [Recovering/Resolving]
  - Dehydration [Recovering/Resolving]

NARRATIVE: CASE EVENT DATE: 20250307
